FAERS Safety Report 8943343 (Version 3)
Quarter: 2013Q1

REPORT INFORMATION
  Report Type: Spontaneous
  Country: US (occurrence: US)
  Receive Date: 20121203
  Receipt Date: 20130108
  Transmission Date: 20140127
  Serious: Yes (Hospitalization)
  Sender: FDA-Public Use
  Company Number: US-GILEAD-2012-0065365

PATIENT
  Sex: Female

DRUGS (2)
  1. LETAIRIS [Suspect]
     Indication: PULMONARY HYPERTENSION
     Dosage: 10 MG, QD
     Route: 048
     Dates: start: 20120919
  2. LETAIRIS [Suspect]
     Indication: UNEVALUABLE EVENT

REACTIONS (3)
  - Pneumonia [Unknown]
  - Pneumothorax [Unknown]
  - Respiratory disorder [Unknown]
